FAERS Safety Report 8438130-X (Version None)
Quarter: 2012Q2

REPORT INFORMATION
  Report Type: 
  Country: None (occurrence: None)
  Receive Date: 20120614
  Receipt Date: 20120606
  Transmission Date: 20120825
  Serious: Yes (Other)
  Sender: FDA-Public Use
  Company Number: IN-B.I. PHARMACEUTICALS,INC./RIDGEFIELD-2012-CS-00825IG

PATIENT
  Age: 84 Year
  Sex: Male

DRUGS (5)
  1. ASPIRIN [Concomitant]
     Dosage: 75 MG
  2. LOSARTAN POTASSIUM [Concomitant]
     Dosage: 50 MG
  3. ATORVASTATIN CALCIUM [Concomitant]
     Dosage: 10 MG
  4. MULTI-VITAMINS [Concomitant]
     Dosage: 1 ANZ
  5. PRADAXA [Suspect]
     Indication: ATRIAL FIBRILLATION
     Dosage: 220 MG
     Route: 048
     Dates: start: 20110101, end: 20120325

REACTIONS (1)
  - PROTHROMBIN TIME RATIO INCREASED [None]
